FAERS Safety Report 13639490 (Version 1)
Quarter: 2017Q2

REPORT INFORMATION
  Report Type: Spontaneous
  Country: US (occurrence: US)
  Receive Date: 20170609
  Receipt Date: 20170609
  Transmission Date: 20170830
  Serious: No
  Sender: FDA-Public Use
  Company Number: US-ROCHE-1406607

PATIENT
  Sex: Male

DRUGS (4)
  1. ZYPREXA [Concomitant]
     Active Substance: OLANZAPINE
  2. KLONOPIN [Suspect]
     Active Substance: CLONAZEPAM
     Indication: PANIC DISORDER
     Route: 048
  3. DOXEPIN [Concomitant]
     Active Substance: DOXEPIN
  4. XANAX [Concomitant]
     Active Substance: ALPRAZOLAM

REACTIONS (7)
  - Drug intolerance [Unknown]
  - Insomnia [Not Recovered/Not Resolved]
  - Sleep disorder [Unknown]
  - Vision blurred [Not Recovered/Not Resolved]
  - Panic attack [Not Recovered/Not Resolved]
  - Drug use disorder [Unknown]
  - Drug ineffective [Unknown]
